FAERS Safety Report 5356719-1 (Version None)
Quarter: 2007Q2

REPORT INFORMATION
  Report Type: 
  Country: None (occurrence: None)
  Receive Date: 20070530
  Receipt Date: 20061005
  Transmission Date: 20071010
  Serious: Yes (Other)
  Sender: FDA-Public Use
  Company Number: US200608005464

PATIENT
  Age: 49 Year
  Sex: Female
  Weight: 67.1 kg

DRUGS (4)
  1. ZYPREXA [Suspect]
     Indication: MENTAL DISORDER
     Dates: start: 19980101, end: 20060101
  2. ARIPIPRAZOLE [Concomitant]
  3. QUETIAPINE FUMARATE [Concomitant]
  4. RISPERIDONE [Concomitant]

REACTIONS (3)
  - DIABETES MELLITUS [None]
  - PANCREATITIS [None]
  - WEIGHT DECREASED [None]
